FAERS Safety Report 17850090 (Version 1)
Quarter: 2020Q2

REPORT INFORMATION
  Report Type: Spontaneous
  Country: ES (occurrence: ES)
  Receive Date: 20200602
  Receipt Date: 20200602
  Transmission Date: 20200714
  Serious: Yes (Other)
  Sender: FDA-Public Use
  Company Number: ES-MYLANLABS-2020M1053042

PATIENT
  Age: 18 Year
  Sex: Male

DRUGS (2)
  1. BILAXTEN [Concomitant]
     Active Substance: BILASTINE
  2. DYMISTA [Suspect]
     Active Substance: AZELASTINE HYDROCHLORIDE\FLUTICASONE PROPIONATE
     Indication: RHINITIS ALLERGIC
     Dosage: UNK
     Route: 065
     Dates: start: 2020

REACTIONS (1)
  - Choking [Recovered/Resolved]
